FAERS Safety Report 11647966 (Version 6)
Quarter: 2017Q2

REPORT INFORMATION
  Report Type: Spontaneous
  Country: JP (occurrence: JP)
  Receive Date: 20151021
  Receipt Date: 20170418
  Transmission Date: 20170829
  Serious: Yes (Other)
  Sender: FDA-Public Use
  Company Number: PHJP2015JP018005

PATIENT
  Age: 3 Year
  Sex: Female

DRUGS (14)
  1. INTERFERON [Concomitant]
     Active Substance: INTERFERON
     Dosage: 5 MG/KG, UNK
     Route: 042
     Dates: start: 20150323
  2. SANDIMMUN INFUSION [Suspect]
     Active Substance: CYCLOSPORINE
     Dosage: 3.5 MG/KG, UNK
     Route: 041
     Dates: start: 20150508, end: 20150602
  3. PREDNISOLONE. [Suspect]
     Active Substance: PREDNISOLONE
     Dosage: 1.6 MG/KG, UNK
     Route: 042
     Dates: start: 20150307, end: 20150315
  4. MESALAZINE [Suspect]
     Active Substance: MESALAMINE
     Indication: COLITIS ULCERATIVE
     Dosage: UNK
     Route: 048
  5. SANDIMMUN INFUSION [Suspect]
     Active Substance: CYCLOSPORINE
     Indication: COLITIS ULCERATIVE
     Dosage: 4 MG/KG, (2 MG/KG-4.2 MG/KG)
     Route: 041
     Dates: start: 20150225, end: 20150325
  6. INTERFERON [Concomitant]
     Active Substance: INTERFERON
     Dosage: 5 MG/KG, UNK
     Route: 042
     Dates: start: 20150420
  7. PREDNISOLONE. [Suspect]
     Active Substance: PREDNISOLONE
     Dosage: 0.3 MG/KG, UNK
     Route: 042
     Dates: start: 20150327, end: 20150406
  8. FK [Concomitant]
     Indication: PRODUCT USED FOR UNKNOWN INDICATION
     Dosage: 0.6 MG/KG, (0.1-0.6 MG/KG)
     Route: 065
     Dates: start: 20150409, end: 20150507
  9. PREDNISOLONE. [Suspect]
     Active Substance: PREDNISOLONE
     Indication: COLITIS ULCERATIVE
     Dosage: 2 MG/KG, UNK
     Route: 042
     Dates: start: 20150217, end: 20150306
  10. PREDNISOLONE. [Suspect]
     Active Substance: PREDNISOLONE
     Dosage: 1.2 MG/KG, UNK
     Route: 042
     Dates: start: 20150316, end: 20150322
  11. SULFASALAZINE. [Suspect]
     Active Substance: SULFASALAZINE
     Indication: COLITIS ULCERATIVE
     Dosage: UNK
     Route: 048
  12. INFLIXIMAB [Suspect]
     Active Substance: INFLIXIMAB
     Indication: COLITIS ULCERATIVE
     Dosage: UNK
     Route: 042
  13. PREDNISOLONE. [Suspect]
     Active Substance: PREDNISOLONE
     Dosage: 0.6 MG/KG, UNK
     Route: 042
     Dates: start: 20150323, end: 20150326
  14. INTERFERON [Concomitant]
     Active Substance: INTERFERON
     Indication: PRODUCT USED FOR UNKNOWN INDICATION
     Dosage: 5 MG/KG, UNK
     Route: 042
     Dates: start: 20150309

REACTIONS (8)
  - Large intestinal haemorrhage [Unknown]
  - Large intestine erosion [Unknown]
  - Large intestinal ulcer [Not Recovered/Not Resolved]
  - Colitis ulcerative [Not Recovered/Not Resolved]
  - Gastrointestinal mucosa hyperaemia [Not Recovered/Not Resolved]
  - Cytomegalovirus infection [Recovered/Resolved]
  - Drug ineffective [Unknown]
  - Product use in unapproved indication [Unknown]

NARRATIVE: CASE EVENT DATE: 201502
